FAERS Safety Report 11845816 (Version 1)
Quarter: 2015Q4

REPORT INFORMATION
  Report Type: Spontaneous
  Country: US (occurrence: US)
  Receive Date: 20151217
  Receipt Date: 20151217
  Transmission Date: 20160305
  Serious: Yes (Other)
  Sender: FDA-Public Use
  Company Number: US-PFIZER INC-2015432711

PATIENT
  Age: 43 Year
  Sex: Male
  Weight: 156 kg

DRUGS (2)
  1. OXYCODONE [Concomitant]
     Active Substance: OXYCODONE
     Indication: PAIN
     Dosage: 10 MG, 3X/DAY
  2. EMBEDA [Suspect]
     Active Substance: MORPHINE SULFATE\NALTREXONE HYDROCHLORIDE
     Dosage: 1 DF, 2X/DAY (20 MG/0.8 MG, ONE CAPSULE EVERY 12 HOURS)
     Dates: start: 20150923, end: 20151120

REACTIONS (7)
  - Chromaturia [Recovered/Resolved]
  - Muscle spasms [Recovered/Resolved]
  - Skin papilloma [Unknown]
  - Nausea [Recovered/Resolved]
  - Urinary retention [Recovered/Resolved]
  - Dysuria [Recovered/Resolved]
  - Abdominal pain upper [Recovered/Resolved]

NARRATIVE: CASE EVENT DATE: 201509
